FAERS Safety Report 10645547 (Version 1)
Quarter: 2014Q4

REPORT INFORMATION
  Report Type: Report from Study
  Country: CA (occurrence: CA)
  Receive Date: 20141211
  Receipt Date: 20141211
  Transmission Date: 20150529
  Serious: Yes (Other)
  Sender: FDA-Public Use
  Company Number: CA-BAYER-2014-178440

PATIENT
  Age: 91 Year
  Sex: Male

DRUGS (1)
  1. NEXAVAR [Suspect]
     Active Substance: SORAFENIB
     Indication: COLORECTAL CANCER METASTATIC
     Dosage: 400 MG, QD
     Route: 048
     Dates: start: 20140909, end: 20141017

REACTIONS (4)
  - Asthenia [Recovering/Resolving]
  - General physical health deterioration [Recovering/Resolving]
  - Product use issue [None]
  - Fatigue [Recovering/Resolving]
